FAERS Safety Report 4478229-6 (Version None)
Quarter: 2004Q3

REPORT INFORMATION
  Report Type: 
  Country: None (occurrence: None)
  Receive Date: 20040923
  Receipt Date: 20040811
  Transmission Date: 20050211
  Serious: No
  Sender: FDA-Public Use
  Company Number: USA040875268

PATIENT
  Age: 62 Year
  Sex: Female

DRUGS (5)
  1. FORTEO [Suspect]
     Indication: OSTEOPOROSIS
     Dates: start: 20040805
  2. CELEBREX [Concomitant]
  3. DIOVAN [Concomitant]
  4. MULTIVITAMIN [Concomitant]
  5. GLUCOSAMINE [Concomitant]

REACTIONS (7)
  - BONE PAIN [None]
  - INJECTION SITE ERYTHEMA [None]
  - INJECTION SITE HAEMORRHAGE [None]
  - INJECTION SITE STINGING [None]
  - INJECTION SITE SWELLING [None]
  - INSOMNIA [None]
  - LETHARGY [None]
